FAERS Safety Report 11371017 (Version 1)
Quarter: 2015Q3

REPORT INFORMATION
  Report Type: Report from Study
  Country: CN (occurrence: CN)
  Receive Date: 20150812
  Receipt Date: 20150812
  Transmission Date: 20151125
  Serious: Yes (Other)
  Sender: FDA-Public Use
  Company Number: CN-BAXALTA-2015BAX030214

PATIENT
  Weight: 60 kg

DRUGS (2)
  1. OCTOCOG ALFA; BAXJECT UNSPECIFIED [Suspect]
     Active Substance: ANTIHEMOPHILIC FACTOR, HUMAN RECOMBINANT
     Indication: PROPHYLAXIS
     Dosage: ,LOWDOSAGE TREATMENT, 1000 IU, 2X A WEEK
     Dates: start: 201503
  2. OCTOCOG ALFA; BAXJECT UNSPECIFIED [Suspect]
     Active Substance: ANTIHEMOPHILIC FACTOR, HUMAN RECOMBINANT
     Indication: FACTOR VIII DEFICIENCY
     Dosage: 1000 IU, 2X A WEEK
     Dates: start: 20130516

REACTIONS (9)
  - Joint injury [Unknown]
  - Muscle atrophy [Unknown]
  - Haemarthrosis [Unknown]
  - Joint stiffness [Unknown]
  - Haemarthrosis [Unknown]
  - Gait disturbance [Unknown]
  - Joint stiffness [Unknown]
  - Haemorrhage [Unknown]
  - Joint swelling [Unknown]

NARRATIVE: CASE EVENT DATE: 201310
